FAERS Safety Report 20760387 (Version 5)
Quarter: 2024Q2

REPORT INFORMATION
  Report Type: Report from Study
  Country: US (occurrence: US)
  Receive Date: 20220428
  Receipt Date: 20240401
  Transmission Date: 20240716
  Serious: No
  Sender: FDA-Public Use
  Company Number: US-ABBVIE-22K-163-4372676-00

PATIENT
  Sex: Female

DRUGS (2)
  1. SKYRIZI [Suspect]
     Active Substance: RISANKIZUMAB-RZAA
     Indication: Psoriasis
     Route: 058
  2. SKYRIZI [Suspect]
     Active Substance: RISANKIZUMAB-RZAA
     Indication: Psoriatic arthropathy
     Route: 058
     Dates: start: 20220411

REACTIONS (8)
  - Tibia fracture [Not Recovered/Not Resolved]
  - Ligament injury [Not Recovered/Not Resolved]
  - Hypoaesthesia [Recovering/Resolving]
  - Feeling cold [Recovering/Resolving]
  - Impaired healing [Recovering/Resolving]
  - Lower limb fracture [Not Recovered/Not Resolved]
  - Fall [Unknown]
  - Nerve injury [Not Recovered/Not Resolved]

NARRATIVE: CASE EVENT DATE: 20220101
